FAERS Safety Report 25355169 (Version 1)
Quarter: 2025Q2

REPORT INFORMATION
  Report Type: Report from Study
  Country: US (occurrence: US)
  Receive Date: 20250524
  Receipt Date: 20250524
  Transmission Date: 20250716
  Serious: Yes (Other)
  Sender: JAZZ
  Company Number: US-JAZZ PHARMACEUTICALS-2025-US-013118

PATIENT
  Sex: Male

DRUGS (1)
  1. EPIDIOLEX [Suspect]
     Active Substance: CANNABIDIOL
     Indication: Generalised tonic-clonic seizure
     Dosage: 8 MILLILITER, BID
     Route: 048
     Dates: start: 201910

REACTIONS (3)
  - Seizure [Unknown]
  - Weight increased [Unknown]
  - Off label use [Unknown]
